FAERS Safety Report 9846642 (Version 2)
Quarter: 2014Q1

REPORT INFORMATION
  Report Type: Report from Study
  Country: AU (occurrence: AU)
  Receive Date: 20140127
  Receipt Date: 20140312
  Transmission Date: 20141002
  Serious: Yes (Other)
  Sender: FDA-Public Use
  Company Number: AU-ASTRAZENECA-2014SE03725

PATIENT
  Age: 78 Year
  Sex: Male

DRUGS (1)
  1. ZOLADEX IMPLANT [Suspect]
     Route: 058
     Dates: start: 20121001

REACTIONS (1)
  - Malignant neoplasm progression [Unknown]
